FAERS Safety Report 26082021 (Version 1)
Quarter: 2025Q4

REPORT INFORMATION
  Report Type: Report from Study
  Country: MX (occurrence: MX)
  Receive Date: 20251124
  Receipt Date: 20251124
  Transmission Date: 20260117
  Serious: Yes (Death, Other)
  Sender: ALEXION PHARMACEUTICALS
  Company Number: MX-AstraZeneca-CH-00999615A

PATIENT
  Sex: Female

DRUGS (9)
  1. OSIMERTINIB [Suspect]
     Active Substance: OSIMERTINIB
     Indication: Lung neoplasm malignant
     Route: 065
  2. CRESTOR [Suspect]
     Active Substance: ROSUVASTATIN CALCIUM
     Dosage: UNK, INTERMITTENT
     Route: 065
  3. LEVOTHYROXINE SODIUM [Concomitant]
     Active Substance: LEVOTHYROXINE SODIUM
     Indication: Thyroid disorder
     Route: 065
  4. METFORMIN HYDROCHLORIDE [Concomitant]
     Active Substance: METFORMIN HYDROCHLORIDE
     Indication: Diabetes mellitus
     Dosage: 1 DOSAGE FORM, QD
     Route: 065
  5. ESOMEPRAZOLE [Concomitant]
     Active Substance: ESOMEPRAZOLE
     Dosage: 1 DOSAGE FORM, EVERY MORNING
     Route: 065
  6. METICORTEN [Concomitant]
     Active Substance: PREDNISONE
     Dosage: 1 DOSAGE FORM, BID
     Route: 065
  7. Axofin [Concomitant]
     Dosage: 1 DOSAGE FORM, EVERY MORNING
     Route: 065
  8. Lodestar [Concomitant]
     Dosage: 1 DOSAGE FORM, EVERY MORNING
     Route: 065
  9. METOPROLOL [Concomitant]
     Active Substance: METOPROLOL
     Dosage: .25 DOSAGE FORM, BID
     Route: 065

REACTIONS (5)
  - Ventricular dysfunction [Fatal]
  - Acute respiratory failure [Fatal]
  - Pneumonia [Fatal]
  - Memory impairment [Unknown]
  - Incontinence [Unknown]
